FAERS Safety Report 21457998 (Version 1)
Quarter: 2022Q4

REPORT INFORMATION
  Report Type: Spontaneous
  Country: DK (occurrence: DK)
  Receive Date: 20221014
  Receipt Date: 20221014
  Transmission Date: 20230113
  Serious: Yes (Other)
  Sender: FDA-Public Use
  Company Number: None

PATIENT
  Age: 57 Year
  Sex: Male

DRUGS (1)
  1. ELIQUIS [Suspect]
     Active Substance: APIXABAN
     Indication: Cerebrovascular accident prophylaxis
     Route: 048
     Dates: start: 20181204, end: 20200115

REACTIONS (5)
  - Tinnitus [Recovering/Resolving]
  - Penile haematoma [Unknown]
  - Pruritus [Unknown]
  - Sudden hearing loss [Recovering/Resolving]
  - Hyperacusis [Recovering/Resolving]

NARRATIVE: CASE EVENT DATE: 20190118
